FAERS Safety Report 20018800 (Version 1)
Quarter: 2021Q4

REPORT INFORMATION
  Report Type: Spontaneous
  Country: US (occurrence: US)
  Receive Date: 20211101
  Receipt Date: 20211101
  Transmission Date: 20220303
  Serious: No
  Sender: FDA-Public Use
  Company Number: US-AUROBINDO-AUR-APL-2020-060902

PATIENT
  Sex: Female
  Weight: 72.5 kg

DRUGS (1)
  1. METOPROLOL TARTRATE [Suspect]
     Active Substance: METOPROLOL TARTRATE
     Indication: Product used for unknown indication
     Dosage: UNK, OVER 4 YEARS AGO
     Route: 065

REACTIONS (1)
  - Weight increased [Not Recovered/Not Resolved]
